FAERS Safety Report 5814292-5 (Version None)
Quarter: 2008Q3

REPORT INFORMATION
  Report Type: 
  Country: None (occurrence: None)
  Receive Date: 20080717
  Receipt Date: 20080709
  Transmission Date: 20090109
  Serious: Yes (Hospitalization)
  Sender: FDA-Public Use
  Company Number: US-ELI_LILLY_AND_COMPANY-US200807001677

PATIENT
  Sex: Female

DRUGS (3)
  1. HUMALOG [Suspect]
     Indication: DIABETES MELLITUS
     Dates: start: 20000101, end: 20020101
  2. BYETTA [Concomitant]
     Indication: DIABETES MELLITUS
     Dosage: 5 MG, 2/D
     Dates: start: 20020101
  3. PREVACID [Concomitant]
     Dosage: 30 MG, 2/D

REACTIONS (1)
  - GASTRIC BYPASS [None]
